FAERS Safety Report 21161439 (Version 1)
Quarter: 2022Q3

REPORT INFORMATION
  Report Type: Spontaneous
  Country: US (occurrence: US)
  Receive Date: 20220802
  Receipt Date: 20220802
  Transmission Date: 20221027
  Serious: Yes (Hospitalization)
  Sender: FDA-Public Use
  Company Number: US-IMMUNOCORE, LTD.-2022-IMC-000993

PATIENT
  Age: 80 Year
  Sex: Male

DRUGS (4)
  1. KIMMTRAK [Suspect]
     Active Substance: TEBENTAFUSP-TEBN
     Indication: Uveal melanoma
     Dosage: UNK 1ST DOSE
     Dates: start: 20220719, end: 20220719
  2. COREG [Concomitant]
     Active Substance: CARVEDILOL
     Indication: Product used for unknown indication
  3. CRESTOR [Concomitant]
     Active Substance: ROSUVASTATIN CALCIUM
     Indication: Product used for unknown indication
  4. RIVAROXABAN [Concomitant]
     Active Substance: RIVAROXABAN
     Indication: Uveal melanoma

REACTIONS (3)
  - Pyrexia [Recovered/Resolved]
  - Hypotension [Recovered/Resolved]
  - Hepatic enzyme increased [Unknown]

NARRATIVE: CASE EVENT DATE: 20220719
